FAERS Safety Report 14683126 (Version 2)
Quarter: 2018Q2

REPORT INFORMATION
  Report Type: Report from Study
  Country: US (occurrence: US)
  Receive Date: 20180327
  Receipt Date: 20180521
  Transmission Date: 20180711
  Serious: Yes (Other)
  Sender: FDA-Public Use
  Company Number: US-ROCHE-2097090

PATIENT
  Age: 50 Year
  Sex: Female
  Weight: 88.08 kg

DRUGS (3)
  1. OCREVUS [Suspect]
     Active Substance: OCRELIZUMAB
     Route: 042
     Dates: start: 20180309
  2. PROCARDIA XL [Concomitant]
     Active Substance: NIFEDIPINE
     Indication: HYPERTENSION
     Route: 065
  3. OCREVUS [Suspect]
     Active Substance: OCRELIZUMAB
     Indication: RELAPSING-REMITTING MULTIPLE SCLEROSIS
     Dosage: SPLIT DOSE (DOSE BASED ON WEIGHT)
     Route: 042
     Dates: start: 20180213

REACTIONS (16)
  - Pharyngeal oedema [Unknown]
  - Sinusitis [Unknown]
  - Malaise [Not Recovered/Not Resolved]
  - Toothache [Not Recovered/Not Resolved]
  - Flushing [Unknown]
  - Pain [Not Recovered/Not Resolved]
  - Headache [Not Recovered/Not Resolved]
  - Pain [Not Recovered/Not Resolved]
  - Feeling cold [Not Recovered/Not Resolved]
  - Headache [Unknown]
  - Feeling hot [Unknown]
  - Feeling hot [Not Recovered/Not Resolved]
  - Immunosuppression [Unknown]
  - Sinusitis [Not Recovered/Not Resolved]
  - Urinary tract infection [Recovered/Resolved]
  - Eye infection [Not Recovered/Not Resolved]

NARRATIVE: CASE EVENT DATE: 20180213
